FAERS Safety Report 24072585 (Version 2)
Quarter: 2024Q3

REPORT INFORMATION
  Report Type: Report from Study
  Country: US (occurrence: US)
  Receive Date: 20240710
  Receipt Date: 20240715
  Transmission Date: 20241017
  Serious: No
  Sender: SANDOZ
  Company Number: US-SANDOZ-SDZ2024US064005

PATIENT

DRUGS (1)
  1. HYRIMOZ [Suspect]
     Active Substance: ADALIMUMAB-ADAZ
     Indication: Product used for unknown indication
     Dosage: UNK (PRE-FILLED PEN)
     Route: 058
     Dates: start: 2024

REACTIONS (2)
  - Injection site pain [Unknown]
  - Needle issue [Unknown]

NARRATIVE: CASE EVENT DATE: 20240101
